FAERS Safety Report 6316834-2 (Version None)
Quarter: 2009Q3

REPORT INFORMATION
  Report Type: 
  Country: None (occurrence: None)
  Receive Date: 20090820
  Receipt Date: 20090807
  Transmission Date: 20100115
  Serious: Yes (Hospitalization)
  Sender: FDA-Public Use
  Company Number: SG-ROCHE-649576

PATIENT
  Age: 4 Year
  Sex: Male
  Weight: 18 kg

DRUGS (4)
  1. TAMIFLU [Suspect]
     Route: 048
     Dates: start: 20090802, end: 20090804
  2. BRUFEN [Concomitant]
  3. ACETAMINOPHEN [Concomitant]
  4. PROMETHAZINE [Concomitant]

REACTIONS (1)
  - STATUS EPILEPTICUS [None]
